FAERS Safety Report 10733762 (Version 8)
Quarter: 2022Q2

REPORT INFORMATION
  Report Type: Report from Study
  Country: IE (occurrence: IE)
  Receive Date: 20150123
  Receipt Date: 20220623
  Transmission Date: 20220721
  Serious: Yes (Hospitalization, Other)
  Sender: FDA-Public Use
  Company Number: IE-SHIRE-IE201500464

PATIENT
  Age: 12 Year
  Sex: Male
  Weight: 29 kg

DRUGS (38)
  1. IDURSULFASE [Suspect]
     Active Substance: IDURSULFASE
     Indication: Mucopolysaccharidosis II
     Dosage: 0.5 MILLIGRAM/KILOGRAM, 1/WEEK
     Route: 042
     Dates: start: 20100518
  2. IDURSULFASE [Suspect]
     Active Substance: IDURSULFASE
     Dosage: 0.48 MILLIGRAM/KILOGRAM, 1/WEEK
     Route: 042
     Dates: start: 20160315
  3. BECLOMETHASONE DIPROPIONATE [Concomitant]
     Active Substance: BECLOMETHASONE DIPROPIONATE
     Indication: Asthma
     Dosage: 50 MICROGRAM, BID
     Route: 050
  4. ACETAMINOPHEN [Concomitant]
     Active Substance: ACETAMINOPHEN
     Indication: Premedication
     Dosage: UNK, 1/WEEK
     Route: 048
     Dates: start: 20100518, end: 20150324
  5. ACETAMINOPHEN [Concomitant]
     Active Substance: ACETAMINOPHEN
     Indication: Pain
     Dosage: UNK
     Route: 048
     Dates: start: 20110616, end: 20110617
  6. ACETAMINOPHEN [Concomitant]
     Active Substance: ACETAMINOPHEN
     Dosage: UNK
     Route: 048
     Dates: start: 20150120, end: 20150128
  7. ACETAMINOPHEN [Concomitant]
     Active Substance: ACETAMINOPHEN
     Dosage: UNK
     Route: 048
     Dates: start: 20150211, end: 20150212
  8. ACETAMINOPHEN [Concomitant]
     Active Substance: ACETAMINOPHEN
     Dosage: UNK
     Route: 048
     Dates: start: 20150414, end: 20150415
  9. VENTOLIN [Concomitant]
     Active Substance: ALBUTEROL SULFATE
     Indication: Asthma
     Dosage: UNK
     Route: 065
  10. AMOXICILLIN [Concomitant]
     Active Substance: AMOXICILLIN
     Indication: Tonsillitis
     Dosage: UNK
     Route: 065
     Dates: start: 20150110
  11. CHLORPHENIRAMINE MALEATE [Concomitant]
     Active Substance: CHLORPHENIRAMINE MALEATE
     Indication: Premedication
     Dosage: UNK
     Route: 048
     Dates: start: 20100518, end: 20150324
  12. DIFENE [Concomitant]
     Active Substance: DICLOFENAC SODIUM
     Indication: Pain
     Dosage: UNK
     Route: 048
     Dates: start: 20110616, end: 20110617
  13. Ametop [Concomitant]
     Indication: Hypoaesthesia
     Dosage: UNK
     Route: 061
     Dates: start: 20120924, end: 20120924
  14. ALBUTEROL [Concomitant]
     Active Substance: ALBUTEROL
     Indication: Respiratory disorder
     Dosage: UNK
     Route: 055
     Dates: start: 20130823
  15. BECONASE AQ [Concomitant]
     Active Substance: BECLOMETHASONE DIPROPIONATE MONOHYDRATE
     Indication: Respiratory disorder
     Dosage: UNK
     Route: 055
     Dates: start: 20130823
  16. AMOXICILLIN\CLAVULANATE POTASSIUM [Concomitant]
     Active Substance: AMOXICILLIN\CLAVULANATE POTASSIUM
     Indication: Infection
     Dosage: UNK
     Route: 042
     Dates: start: 20150119, end: 20150120
  17. AMOXICILLIN\CLAVULANATE POTASSIUM [Concomitant]
     Active Substance: AMOXICILLIN\CLAVULANATE POTASSIUM
     Dosage: UNK
     Route: 042
     Dates: start: 20150414, end: 20150416
  18. VANCOMYCIN [Concomitant]
     Active Substance: VANCOMYCIN
     Indication: Device related infection
     Dosage: UNK
     Route: 042
     Dates: start: 20150121, end: 20150127
  19. VANCOMYCIN [Concomitant]
     Active Substance: VANCOMYCIN
     Dosage: UNK
     Route: 042
     Dates: start: 20150201, end: 20150202
  20. GENTAMICIN [Concomitant]
     Active Substance: GENTAMICIN
     Indication: Device related infection
     Dosage: UNK
     Route: 042
     Dates: start: 20150121, end: 20150122
  21. UROKINASE [Concomitant]
     Active Substance: UROKINASE
     Indication: Device related infection
     Dosage: UNK
     Route: 042
     Dates: start: 20150122, end: 20150131
  22. EMLA [Concomitant]
     Active Substance: LIDOCAINE\PRILOCAINE
     Indication: Local anaesthesia
     Dosage: UNK
     Route: 061
     Dates: start: 20150122, end: 20150122
  23. TINZAPARIN SODIUM [Concomitant]
     Active Substance: TINZAPARIN SODIUM
     Indication: Prophylaxis
     Dosage: UNK
     Route: 048
     Dates: start: 20150122, end: 20150203
  24. CEFTRIAXONE [Concomitant]
     Active Substance: CEFTRIAXONE
     Indication: Device related infection
     Dosage: UNK
     Route: 042
     Dates: start: 20150127, end: 20150129
  25. CHLORPHENIRAMINE MALEATE [Concomitant]
     Active Substance: CHLORPHENIRAMINE MALEATE
     Indication: Premedication
     Dosage: UNK
     Route: 048
     Dates: start: 20150128, end: 20150128
  26. BECLOMETHASONE DIPROPIONATE [Concomitant]
     Active Substance: BECLOMETHASONE DIPROPIONATE
     Indication: Respiratory disorder
     Dosage: UNK
     Route: 055
     Dates: start: 20150202, end: 20150204
  27. HEPARIN SODIUM [Concomitant]
     Active Substance: HEPARIN SODIUM
     Dosage: UNK
     Route: 042
     Dates: start: 20150321, end: 20150323
  28. DEXAMETHASONE [Concomitant]
     Active Substance: DEXAMETHASONE
     Indication: Respiratory tract infection
     Dosage: UNK
     Route: 042
     Dates: start: 20150414, end: 20150416
  29. DEXAMETHASONE [Concomitant]
     Active Substance: DEXAMETHASONE
     Dosage: UNK
     Route: 048
     Dates: start: 20150414, end: 20150421
  30. IBUPROFEN [Concomitant]
     Active Substance: IBUPROFEN
     Indication: Pain
     Dosage: UNK
     Route: 048
     Dates: start: 20150414, end: 20150415
  31. ZOFRAN [Concomitant]
     Active Substance: ONDANSETRON HYDROCHLORIDE
     Indication: Nausea
     Dosage: UNK
     Route: 048
     Dates: start: 20150416, end: 20150416
  32. SERETIDE [Concomitant]
     Active Substance: FLUTICASONE PROPIONATE\SALMETEROL XINAFOATE
     Indication: Respiratory disorder
     Dosage: UNK
     Route: 055
     Dates: start: 20160412
  33. MONTELUKAST [Concomitant]
     Active Substance: MONTELUKAST SODIUM
     Indication: Respiratory disorder
     Dosage: UNK
     Route: 048
     Dates: start: 20160412
  34. ERYTHROMYCIN [Concomitant]
     Active Substance: ERYTHROMYCIN
     Indication: Respiratory disorder
     Dosage: UNK
     Route: 042
     Dates: start: 20170220, end: 20170302
  35. AZITHROMYCIN [Concomitant]
     Active Substance: AZITHROMYCIN
     Indication: Respiratory disorder
     Dosage: UNK
     Route: 048
     Dates: start: 20170220, end: 20170302
  36. Amoclox [Concomitant]
     Indication: Illness
     Dosage: UNK
     Route: 048
     Dates: start: 20171226
  37. FLUTICASONE FUROATE\VILANTEROL TRIFENATATE [Concomitant]
     Active Substance: FLUTICASONE FUROATE\VILANTEROL TRIFENATATE
     Dosage: UNK
     Route: 055
     Dates: start: 20191003
  38. SPIRIVA [Concomitant]
     Active Substance: TIOTROPIUM BROMIDE MONOHYDRATE
     Dosage: UNK
     Route: 055
     Dates: start: 20191030

REACTIONS (3)
  - Device related infection [Recovered/Resolved]
  - Device occlusion [Not Recovered/Not Resolved]
  - Device malfunction [Recovered/Resolved]

NARRATIVE: CASE EVENT DATE: 20150101
